FAERS Safety Report 7058128-6 (Version None)
Quarter: 2010Q4

REPORT INFORMATION
  Report Type: 
  Country: None (occurrence: None)
  Receive Date: 20101022
  Receipt Date: 20101014
  Transmission Date: 20110411
  Serious: Yes (Other)
  Sender: FDA-Public Use
  Company Number: US-MERCK-1009USA01655

PATIENT
  Age: 80 Year
  Sex: Female
  Weight: 65 kg

DRUGS (2)
  1. COZAAR [Suspect]
     Indication: HYPERTENSION
     Route: 048
     Dates: start: 19800101
  2. COZAAR [Suspect]
     Route: 048

REACTIONS (2)
  - BLOOD PRESSURE INCREASED [None]
  - PALPITATIONS [None]
